FAERS Safety Report 8878821 (Version 1)
Quarter: 2012Q4

REPORT INFORMATION
  Report Type: 
  Country: IL (occurrence: IL)
  Receive Date: 20121026
  Receipt Date: 20121026
  Transmission Date: 20130627
  Serious: Yes (Hospitalization)
  Sender: FDA-Public Use
  Company Number: IL-ELI_LILLY_AND_COMPANY-IL201210006489

PATIENT
  Age: 71 Year
  Sex: Female
  Weight: 80 kg

DRUGS (4)
  1. FORTEO [Suspect]
     Indication: OSTEOPOROSIS
     Dosage: 20 ug, qd
     Route: 058
     Dates: start: 20120517, end: 20120925
  2. CARTIA                                  /HKG/ [Concomitant]
  3. CARDILOC [Concomitant]
  4. FLIXOTIDE [Concomitant]

REACTIONS (4)
  - Dyspnoea [Unknown]
  - Fatigue [Unknown]
  - Blood pH decreased [Unknown]
  - Blood gases abnormal [Unknown]
